FAERS Safety Report 22623930 (Version 4)
Quarter: 2025Q3

REPORT INFORMATION
  Report Type: Spontaneous
  Country: BR (occurrence: BR)
  Receive Date: 20230621
  Receipt Date: 20250821
  Transmission Date: 20251021
  Serious: Yes (Other)
  Sender: TAKEDA
  Company Number: BR-TAKEDA-2023TUS059387

PATIENT
  Sex: Male

DRUGS (2)
  1. LISDEXAMFETAMINE DIMESYLATE [Suspect]
     Active Substance: LISDEXAMFETAMINE DIMESYLATE
     Indication: Attention deficit hyperactivity disorder
  2. LISDEXAMFETAMINE DIMESYLATE [Suspect]
     Active Substance: LISDEXAMFETAMINE DIMESYLATE
     Indication: Product used for unknown indication

REACTIONS (25)
  - Memory impairment [Unknown]
  - Sleep disorder [Unknown]
  - Rebound effect [Unknown]
  - Feeling abnormal [Unknown]
  - Hunger [Unknown]
  - Asthenia [Unknown]
  - Eating disorder [Unknown]
  - Confusional state [Unknown]
  - Drug ineffective [Unknown]
  - Apathy [Unknown]
  - Impatience [Unknown]
  - Disturbance in attention [Unknown]
  - Discomfort [Unknown]
  - Loss of personal independence in daily activities [Unknown]
  - Influenza [Unknown]
  - Fear [Unknown]
  - Restless legs syndrome [Unknown]
  - Agitation [Unknown]
  - Depressed mood [Unknown]
  - Fatigue [Unknown]
  - Headache [Unknown]
  - Insomnia [Unknown]
  - Psychomotor skills impaired [Unknown]
  - Emotional distress [Unknown]
  - Self esteem decreased [Unknown]
